FAERS Safety Report 12078390 (Version 1)
Quarter: 2016Q1

REPORT INFORMATION
  Report Type: Report from Study
  Country: DE (occurrence: DE)
  Receive Date: 20160216
  Receipt Date: 20160216
  Transmission Date: 20160526
  Serious: Yes (Death, Hospitalization)
  Sender: FDA-Public Use
  Company Number: DE-ROCHE-1710253

PATIENT
  Age: 63 Year
  Sex: Male

DRUGS (3)
  1. RIBAVIRIN. [Suspect]
     Active Substance: RIBAVIRIN
     Indication: CHRONIC HEPATITIS C
     Dosage: DOSE AS ACCORDING TO BODY WEIGHT, RENAL FUNCTION, AND HEMOGLOBIN LEVEL.
     Route: 048
  2. RIBAVIRIN. [Suspect]
     Active Substance: RIBAVIRIN
     Route: 048
  3. SOFOSBUVIR [Suspect]
     Active Substance: SOFOSBUVIR
     Indication: CHRONIC HEPATITIS C
     Route: 048

REACTIONS (10)
  - Anaemia [Unknown]
  - Hyperbilirubinaemia [Unknown]
  - Peritonitis bacterial [Unknown]
  - Sepsis [Unknown]
  - Hepatic failure [Unknown]
  - Lactic acidosis [Fatal]
  - Septic shock [Fatal]
  - Hypoglycaemia [Unknown]
  - Renal failure [Unknown]
  - Hepatic encephalopathy [Unknown]
